FAERS Safety Report 8349361-1 (Version None)
Quarter: 2012Q2

REPORT INFORMATION
  Report Type: 
  Country: None (occurrence: None)
  Receive Date: 20120510
  Receipt Date: 20120504
  Transmission Date: 20120825
  Serious: Yes (Death, Other)
  Sender: FDA-Public Use
  Company Number: PHEH2011US012523

PATIENT
  Sex: Male

DRUGS (1)
  1. TASIGNA [Suspect]
     Indication: CHRONIC MYELOID LEUKAEMIA
     Dosage: 400 MG, BID
     Route: 048
     Dates: start: 20110116

REACTIONS (4)
  - NEOPLASM MALIGNANT [None]
  - DRUG INEFFECTIVE [None]
  - CHRONIC MYELOID LEUKAEMIA [None]
  - PNEUMONIA [None]
